FAERS Safety Report 16053942 (Version 4)
Quarter: 2019Q4

REPORT INFORMATION
  Report Type: Report from Study
  Country: GB (occurrence: GB)
  Receive Date: 20190308
  Receipt Date: 20191212
  Transmission Date: 20200122
  Serious: Yes (Hospitalization, Other)
  Sender: FDA-Public Use
  Company Number: GB-ACTELION-A-NJ2019-187417

PATIENT
  Age: 73 Year
  Sex: Female

DRUGS (1)
  1. VENTAVIS [Suspect]
     Active Substance: ILOPROST
     Indication: PULMONARY ARTERIAL HYPERTENSION
     Dosage: UNK
     Route: 055
     Dates: start: 20180918

REACTIONS (4)
  - Drug dose omission by device [Unknown]
  - Hospitalisation [Unknown]
  - Drug delivery system malfunction [Unknown]
  - Malaise [Unknown]

NARRATIVE: CASE EVENT DATE: 20190904
